FAERS Safety Report 9604463 (Version 2)
Quarter: 2013Q4

REPORT INFORMATION
  Report Type: Report from Study
  Country: FR (occurrence: FR)
  Receive Date: 20131008
  Receipt Date: 20131029
  Transmission Date: 20140711
  Serious: Yes (Hospitalization)
  Sender: FDA-Public Use
  Company Number: FR-PFIZER INC-2013283389

PATIENT
  Age: 73 Year
  Sex: Male

DRUGS (6)
  1. BLINDED PLACEBO [Suspect]
     Indication: HEPATOCELLULAR CARCINOMA
     Dosage: 37.5 MG, 1X/DAY
     Route: 048
     Dates: start: 20130402
  2. SUNITINIB MALATE [Suspect]
     Indication: HEPATOCELLULAR CARCINOMA
     Dosage: 37.5 MG, 1X/DAY
     Route: 048
     Dates: start: 20130402
  3. DIAMICRON [Concomitant]
     Dosage: 3 DF, DAILY
     Dates: start: 201302, end: 20130415
  4. GLUCOPHAGE [Concomitant]
     Dosage: 3 DF, DAILY
  5. GLUCOR [Concomitant]
     Dosage: 3 DF, DAILY
  6. LEVEMIR [Concomitant]
     Dosage: 15 IU, 1X/DAY
     Dates: start: 20130411

REACTIONS (1)
  - Diabetes mellitus inadequate control [Recovered/Resolved]
